FAERS Safety Report 20258301 (Version 1)
Quarter: 2021Q4

REPORT INFORMATION
  Report Type: Spontaneous
  Country: US (occurrence: None)
  Receive Date: 20211229
  Receipt Date: 20211229
  Transmission Date: 20220304
  Serious: No
  Sender: FDA-Public Use
  Company Number: None

PATIENT
  Sex: Female

DRUGS (3)
  1. ENBREL [Suspect]
     Active Substance: ETANERCEPT
     Indication: Ankylosing spondylitis
     Dosage: FREQUENCY: WEEKLY?
     Route: 058
     Dates: start: 20210616
  2. Flexall Pain Gel Relieving [Concomitant]
  3. Morphine Sul Sol 10mg/5ml [Concomitant]

REACTIONS (2)
  - Surgery [None]
  - Therapy interrupted [None]
